FAERS Safety Report 22016729 (Version 5)
Quarter: 2024Q2

REPORT INFORMATION
  Report Type: Spontaneous
  Country: US (occurrence: US)
  Receive Date: 20230221
  Receipt Date: 20240524
  Transmission Date: 20240716
  Serious: No
  Sender: FDA-Public Use
  Company Number: US-PFIZER INC-PV202300030789

PATIENT
  Age: 70 Year
  Sex: Male

DRUGS (1)
  1. XELJANZ XR [Suspect]
     Active Substance: TOFACITINIB CITRATE
     Dosage: 11 MG

REACTIONS (6)
  - Cerebral disorder [Unknown]
  - Confusional state [Unknown]
  - Peripheral swelling [Unknown]
  - Pain [Unknown]
  - Swelling [Unknown]
  - Musculoskeletal discomfort [Unknown]
